FAERS Safety Report 25239402 (Version 1)
Quarter: 2025Q2

REPORT INFORMATION
  Report Type: Other
  Country: US (occurrence: US)
  Receive Date: 20250425
  Receipt Date: 20250425
  Transmission Date: 20250716
  Serious: Yes (Life-Threatening, Hospitalization, Other)
  Sender: B BRAUN
  Company Number: US-B.Braun Medical Inc.-2175551

PATIENT
  Age: 30 Year
  Sex: Female

DRUGS (4)
  1. CEFEPIME HYDROCHLORIDE [Suspect]
     Active Substance: CEFEPIME HYDROCHLORIDE
  2. VORICONAZOLE [Concomitant]
     Active Substance: VORICONAZOLE
  3. AMPHOTERICIN B [Concomitant]
     Active Substance: AMPHOTERICIN B
  4. MEROPENEM [Concomitant]
     Active Substance: MEROPENEM

REACTIONS (1)
  - Stevens-Johnson syndrome [Not Recovered/Not Resolved]
